FAERS Safety Report 24883394 (Version 1)
Quarter: 2025Q1

REPORT INFORMATION
  Report Type: Spontaneous
  Country: US (occurrence: US)
  Receive Date: 20250124
  Receipt Date: 20250124
  Transmission Date: 20250409
  Serious: Yes (Other)
  Sender: AMGEN
  Company Number: US-AMGEN-USASP2025012074

PATIENT

DRUGS (2)
  1. SOTORASIB [Suspect]
     Active Substance: SOTORASIB
     Indication: Non-small cell lung cancer
     Dosage: 960 MILLIGRAM, QD
     Route: 065
  2. SOTORASIB [Suspect]
     Active Substance: SOTORASIB
     Indication: K-ras gene mutation

REACTIONS (11)
  - Thrombocytopenia [Unknown]
  - Gastrointestinal disorder [Unknown]
  - Metabolic disorder [Unknown]
  - Cardiovascular disorder [Unknown]
  - Liver disorder [Unknown]
  - Respiratory disorder [Unknown]
  - Infection [Unknown]
  - Skin disorder [Unknown]
  - Endocrine disorder [Unknown]
  - Adverse event [Unknown]
  - Anaemia [Unknown]
